FAERS Safety Report 9121812 (Version 3)
Quarter: 2017Q1

REPORT INFORMATION
  Report Type: Report from Study
  Country: JP (occurrence: JP)
  Receive Date: 20130207
  Receipt Date: 20170213
  Transmission Date: 20170429
  Serious: Yes (Death, Hospitalization, Other)
  Sender: FDA-Public Use
  Company Number: JP-GILEAD-2013-0069310

PATIENT
  Age: 68 Year
  Sex: Female
  Weight: 41 kg

DRUGS (26)
  1. REVATIO [Suspect]
     Active Substance: SILDENAFIL CITRATE
     Indication: PULMONARY ARTERIAL HYPERTENSION
     Dosage: 60 MG, TID
     Route: 048
     Dates: start: 20080418, end: 20121004
  2. CODEINE PHOSPHATE HYDRATE [Concomitant]
     Active Substance: CODEINE PHOSPHATE
     Dosage: UNK
     Dates: start: 20120416, end: 20120603
  3. FUROSEMIDE. [Concomitant]
     Active Substance: FUROSEMIDE
     Indication: CARDIAC FAILURE
     Dosage: 40MG TWICE PER DAY
     Route: 048
     Dates: end: 20121004
  4. METILDIGOXIN [Concomitant]
     Active Substance: METILDIGOXIN
     Dosage: .1MG PER DAY
     Route: 048
     Dates: end: 20121004
  5. ZYLORIC [Concomitant]
     Active Substance: ALLOPURINOL
     Dosage: 100MG PER DAY
     Route: 048
     Dates: start: 20100107, end: 20121004
  6. PARIET [Concomitant]
     Active Substance: RABEPRAZOLE SODIUM
     Dosage: 10MG PER DAY
     Route: 048
     Dates: start: 20100107, end: 20121004
  7. FLOLAN [Suspect]
     Active Substance: EPOPROSTENOL SODIUM
     Indication: PULMONARY ARTERIAL HYPERTENSION
     Dosage: UNK
     Route: 042
     Dates: start: 20091109, end: 20121004
  8. GLIVEC [Suspect]
     Active Substance: IMATINIB MESYLATE
     Indication: PULMONARY ARTERIAL HYPERTENSION
     Dosage: UNK
     Route: 048
     Dates: start: 20110806, end: 20110901
  9. ADCIRCA [Suspect]
     Active Substance: TADALAFIL
     Indication: PULMONARY ARTERIAL HYPERTENSION
     Dosage: UNK
     Route: 048
     Dates: start: 20120113, end: 20121004
  10. PANALDINE [Suspect]
     Active Substance: TICLOPIDINE HYDROCHLORIDE
     Indication: PROPHYLAXIS
     Dosage: 200 MG, BID
     Route: 048
     Dates: end: 20110221
  11. FERROMIA (JAPAN) [Concomitant]
     Dosage: 50 MG, QD
     Route: 048
     Dates: start: 20110729, end: 20121004
  12. LAC-B GRANULAR POWDER N [Concomitant]
     Dosage: UNK
     Dates: start: 20120109, end: 20120207
  13. LOPEMIN [Concomitant]
     Active Substance: LOPERAMIDE HYDROCHLORIDE
     Dosage: UNK
     Dates: start: 20111208, end: 20121004
  14. ARTIST [Concomitant]
     Active Substance: CARVEDILOL
     Dosage: UNK
     Dates: start: 20110114, end: 20120208
  15. FLUITRAN [Concomitant]
     Active Substance: TRICHLORMETHIAZIDE
     Dosage: UNK
     Dates: start: 20120216, end: 20121004
  16. AMBRISENTAN [Suspect]
     Active Substance: AMBRISENTAN
     Dosage: 10 MG, QD
     Route: 048
     Dates: start: 20101008, end: 20121004
  17. ALDACTONE A [Concomitant]
     Active Substance: SPIRONOLACTONE
     Indication: CARDIAC FAILURE
     Dosage: 25MG PER DAY
     Route: 048
     Dates: start: 20100116, end: 20121004
  18. BIOFERMIN                          /00275501/ [Concomitant]
     Active Substance: BACILLUS SUBTILIS\LACTOBACILLUS ACIDOPHILUS\STREPTOCOCCUS FAECAIS
     Dosage: 3G THREE TIMES PER DAY
     Route: 048
     Dates: start: 200911, end: 20121004
  19. FERROMIA                           /00023520/ [Concomitant]
     Dosage: 50MG PER DAY
     Route: 048
     Dates: start: 20100103, end: 20121004
  20. BIOFERMIN [Concomitant]
     Active Substance: BACILLUS SUBTILIS\LACTOBACILLUS ACIDOPHILUS\STREPTOCOCCUS FAECAIS
     Route: 048
     Dates: start: 200911, end: 20121004
  21. HERBESSER [Concomitant]
     Active Substance: DILTIAZEM HYDROCHLORIDE
     Indication: PULMONARY ARTERIAL HYPERTENSION
     Dosage: UNK
     Route: 048
     Dates: start: 20100202, end: 20121004
  22. MAINTATE [Concomitant]
     Active Substance: BISOPROLOL FUMARATE
     Dosage: UNK
     Dates: start: 20120209, end: 20121004
  23. AMBRISENTAN [Suspect]
     Active Substance: AMBRISENTAN
     Indication: PULMONARY ARTERIAL HYPERTENSION
     Dosage: 5 MG, QD
     Route: 048
     Dates: start: 20101002, end: 20101007
  24. LIVALO [Concomitant]
     Active Substance: PITAVASTATIN CALCIUM
     Dosage: 2MG PER DAY
     Route: 048
     Dates: end: 20121004
  25. ASPENON [Concomitant]
     Active Substance: APRINDINE HYDROCHLORIDE
     Dosage: UNK
     Dates: start: 20120204, end: 20121004
  26. MIYA-BM [Concomitant]
     Active Substance: CLOSTRIDIUM BUTYRICUM SPORES STRAIN M-55
     Dosage: UNK
     Dates: start: 20120208, end: 20121004

REACTIONS (12)
  - Cardiac failure [Recovering/Resolving]
  - Femur fracture [Unknown]
  - Oedema peripheral [Recovering/Resolving]
  - Sudden death [Fatal]
  - Deafness neurosensory [Unknown]
  - Hepatic function abnormal [Recovered/Resolved]
  - Small intestinal haemorrhage [Recovering/Resolving]
  - Hepatic enzyme increased [Unknown]
  - Otitis media [Recovering/Resolving]
  - Right ventricular failure [Recovering/Resolving]
  - Anaemia [Recovered/Resolved]
  - Oedema peripheral [Recovering/Resolving]

NARRATIVE: CASE EVENT DATE: 201001
